FAERS Safety Report 5411576-X (Version None)
Quarter: 2007Q3

REPORT INFORMATION
  Report Type: 
  Country: None (occurrence: None)
  Receive Date: 20070810
  Receipt Date: 20070804
  Transmission Date: 20080115
  Serious: Yes (Other)
  Sender: FDA-Public Use
  Company Number: US-PFIZER INC-2007044693

PATIENT
  Sex: Female

DRUGS (1)
  1. DEPO-PROVERA SUSPENSION/INJ [Suspect]
     Dosage: FREQ:FIRST INJECTION
     Route: 030
     Dates: start: 20061001, end: 20061001

REACTIONS (3)
  - AGGRESSION [None]
  - DEPRESSION [None]
  - LOWER LIMB FRACTURE [None]
